FAERS Safety Report 24403288 (Version 1)
Quarter: 2024Q4

REPORT INFORMATION
  Report Type: Report from Study
  Country: CN (occurrence: CN)
  Receive Date: 20241007
  Receipt Date: 20241007
  Transmission Date: 20250114
  Serious: No
  Sender: ROCHE
  Company Number: CN-ROCHE-3467368

PATIENT
  Age: 73 Year
  Sex: Male
  Weight: 73.0 kg

DRUGS (2)
  1. OBINUTUZUMAB [Suspect]
     Active Substance: OBINUTUZUMAB
     Indication: Follicular lymphoma
     Route: 042
     Dates: start: 20230620
  2. BENDAMUSTINE [Suspect]
     Active Substance: BENDAMUSTINE
     Indication: Follicular lymphoma
     Dosage: 100MG PER VIAL, INTRAVENOUS FLUIDS
     Route: 042
     Dates: start: 20230620

REACTIONS (2)
  - Lymphadenopathy [Unknown]
  - Disease progression [Unknown]

NARRATIVE: CASE EVENT DATE: 20231001
